FAERS Safety Report 8504080-3 (Version None)
Quarter: 2012Q3

REPORT INFORMATION
  Report Type: 
  Country: None (occurrence: None)
  Receive Date: 20120711
  Receipt Date: 20120705
  Transmission Date: 20120928
  Serious: Yes (Hospitalization)
  Sender: FDA-Public Use
  Company Number: JP-ABBOTT-12P-087-0953417-00

PATIENT
  Age: 39 Year
  Sex: Male

DRUGS (8)
  1. AZITHROMYCIN [Concomitant]
     Indication: PROPHYLAXIS
  2. RITONAVIR [Suspect]
     Indication: HIV INFECTION
     Dosage: 100 MG/1X
  3. AZITHROMYCIN [Concomitant]
     Indication: MYCOBACTERIAL INFECTION
  4. SULFAMETHOXAZOLE AND TRIMETHOPRIM [Concomitant]
     Indication: PROPHYLAXIS
  5. SULFAMETHOXAZOLE AND TRIMETHOPRIM [Concomitant]
     Indication: PNEUMOCYSTIS JIROVECI PNEUMONIA
     Dosage: 400 MG/80 MG/1X
     Route: 048
  6. EMTRICITABINE/TENOFOVIR DISOPROXIL FUMARATE [Suspect]
     Indication: HIV INFECTION
     Dosage: 300 MG/200 MG/1X
  7. ATAZANAVIR [Suspect]
     Indication: HIV INFECTION
     Dosage: 300 MG/1X
  8. VALGANCICLOVIR [Concomitant]
     Indication: CYTOMEGALOVIRUS TEST POSITIVE
     Dosage: 900 MG/1X

REACTIONS (4)
  - LIVER DISORDER [None]
  - IMMUNE RECONSTITUTION SYNDROME [None]
  - ASPARTATE AMINOTRANSFERASE INCREASED [None]
  - ALANINE AMINOTRANSFERASE INCREASED [None]
